FAERS Safety Report 7653682-5 (Version None)
Quarter: 2011Q3

REPORT INFORMATION
  Report Type: 
  Country: None (occurrence: None)
  Receive Date: 20110803
  Receipt Date: 20110729
  Transmission Date: 20111222
  Serious: Yes (Death, Hospitalization)
  Sender: FDA-Public Use
  Company Number: CN-PFIZER INC-2011165194

PATIENT
  Sex: Male

DRUGS (1)
  1. SUTENT [Suspect]
     Indication: RENAL CELL CARCINOMA
     Dosage: 4 CAPSULES,1X/DAY
     Route: 048

REACTIONS (3)
  - DEATH [None]
  - HYPOPROTEINAEMIA [None]
  - HYDROTHORAX [None]
